FAERS Safety Report 13214676 (Version 3)
Quarter: 2017Q1

REPORT INFORMATION
  Report Type: Spontaneous
  Country: FR (occurrence: FR)
  Receive Date: 20170210
  Receipt Date: 20170316
  Transmission Date: 20170428
  Serious: Yes (Other)
  Sender: FDA-Public Use
  Company Number: FR-ALEXION PHARMACEUTICALS INC.-A201701277

PATIENT
  Age: 55 Year
  Sex: Male

DRUGS (8)
  1. SPECIAFOLDINE [Concomitant]
     Active Substance: FOLIC ACID
     Indication: PRODUCT USED FOR UNKNOWN INDICATION
     Route: 065
  2. AMOXICILLIN                        /00249602/ [Concomitant]
     Active Substance: AMOXICILLIN
     Indication: PROPHYLAXIS
     Dosage: 500 MG, MORNINGS AND EVENINGS
     Route: 065
  3. SOLIRIS [Suspect]
     Active Substance: ECULIZUMAB
     Dosage: 900 MG, EVERY 15 DAYS
     Route: 042
     Dates: start: 201607
  4. SOLIRIS [Suspect]
     Active Substance: ECULIZUMAB
     Dosage: 1200 MG, EVERY 15 DAYS
     Route: 042
     Dates: start: 20161031
  5. ZOPHREN                            /00955301/ [Concomitant]
     Active Substance: ONDANSETRON
     Indication: PRODUCT USED FOR UNKNOWN INDICATION
     Dosage: 8 MG, UNK
     Route: 065
     Dates: start: 20160619
  6. SOLU-MEDROL [Concomitant]
     Active Substance: METHYLPREDNISOLONE SODIUM SUCCINATE
     Indication: PRODUCT USED FOR UNKNOWN INDICATION
     Dosage: 60 MG, UNK
     Route: 065
     Dates: start: 20080625
  7. HYDROCORTISONE. [Concomitant]
     Active Substance: HYDROCORTISONE
     Indication: BLOOD CORTISOL
     Dosage: 10 MG, BID
     Route: 065
  8. SOLIRIS [Suspect]
     Active Substance: ECULIZUMAB
     Indication: PAROXYSMAL NOCTURNAL HAEMOGLOBINURIA
     Dosage: 600 MG, EVERY 15 DAYS
     Route: 042
     Dates: start: 20160719, end: 20160809

REACTIONS (11)
  - Arthropathy [Unknown]
  - Haptoglobin decreased [Unknown]
  - Arthralgia [Not Recovered/Not Resolved]
  - Haemolysis [Unknown]
  - Grip strength decreased [Unknown]
  - Fatigue [Unknown]
  - Drug ineffective [Unknown]
  - Blood lactate dehydrogenase increased [Unknown]
  - Incorrect dose administered [Not Recovered/Not Resolved]
  - Trigger finger [Unknown]
  - Hydrocele [Unknown]

NARRATIVE: CASE EVENT DATE: 201612
